FAERS Safety Report 9578418 (Version 1)
Quarter: 2013Q4

REPORT INFORMATION
  Report Type: Spontaneous
  Country: US (occurrence: US)
  Receive Date: 20131001
  Receipt Date: 20131001
  Transmission Date: 20140711
  Serious: No
  Sender: FDA-Public Use
  Company Number: US-AMGEN-USASP2013013527

PATIENT
  Age: 31 Year
  Sex: Female
  Weight: 81.63 kg

DRUGS (5)
  1. ENBREL [Suspect]
     Indication: PSORIASIS
     Dosage: 50 MG, QWK
     Route: 058
  2. HUMIRA [Concomitant]
     Dosage: UNK
  3. LOESTRIN [Concomitant]
     Dosage: 1/20-21, UNK
  4. TYLENOL                            /00020001/ [Concomitant]
     Dosage: 500 MG, UNK
  5. ADVIL                              /00044201/ [Concomitant]
     Dosage: 200 MG, UNK

REACTIONS (1)
  - Therapeutic response decreased [Unknown]
